FAERS Safety Report 6189043-8 (Version None)
Quarter: 2009Q2

REPORT INFORMATION
  Report Type: 
  Country: None (occurrence: None)
  Receive Date: 20090513
  Receipt Date: 20090501
  Transmission Date: 20091009
  Serious: Yes (Other)
  Sender: FDA-Public Use
  Company Number: US-GILEAD-2008-0018362

PATIENT
  Age: 41 Year
  Sex: Female

DRUGS (4)
  1. TRUVADA [Suspect]
     Indication: HIV INFECTION
     Route: 048
     Dates: start: 20070111, end: 20080828
  2. KALETRA [Concomitant]
     Dates: start: 20080917
  3. COMBIVIR [Concomitant]
     Route: 048
     Dates: start: 20080917
  4. VIRACEPT [Concomitant]
     Route: 048

REACTIONS (1)
  - ABORTION SPONTANEOUS [None]
